FAERS Safety Report 16824078 (Version 2)
Quarter: 2019Q3

REPORT INFORMATION
  Report Type: Spontaneous
  Country: GB (occurrence: GB)
  Receive Date: 20190918
  Receipt Date: 20190930
  Transmission Date: 20191005
  Serious: Yes (Hospitalization, Other)
  Sender: FDA-Public Use
  Company Number: GB-NOVOPROD-684413

PATIENT
  Age: 46 Year
  Sex: Female

DRUGS (1)
  1. SAXENDA [Suspect]
     Active Substance: LIRAGLUTIDE
     Indication: WEIGHT CONTROL
     Dosage: UNK
     Route: 065

REACTIONS (6)
  - Loss of consciousness [Unknown]
  - Depression [Unknown]
  - Product use issue [Unknown]
  - Weight loss poor [Unknown]
  - Drug diversion [Unknown]
  - Suicide attempt [Unknown]
